FAERS Safety Report 4931980-3 (Version None)
Quarter: 2006Q1

REPORT INFORMATION
  Report Type: 
  Country: None (occurrence: None)
  Receive Date: 20060303
  Receipt Date: 20060301
  Transmission Date: 20060701
  Serious: Yes (Hospitalization)
  Sender: FDA-Public Use
  Company Number: US-GLAXOSMITHKLINE-A0595722A

PATIENT
  Age: 54 Year
  Sex: Male

DRUGS (3)
  1. ARIXTRA [Suspect]
     Indication: DEEP VEIN THROMBOSIS
     Route: 058
     Dates: start: 20051220, end: 20051220
  2. COUMADIN [Concomitant]
  3. LOVENOX [Concomitant]

REACTIONS (8)
  - ABASIA [None]
  - DRUG HYPERSENSITIVITY [None]
  - FAECAL INCONTINENCE [None]
  - HYPOAESTHESIA [None]
  - MONOPLEGIA [None]
  - NECROSIS [None]
  - SPINAL CORD HAEMORRHAGE [None]
  - URINARY INCONTINENCE [None]
